FAERS Safety Report 4474943-7 (Version None)
Quarter: 2004Q3

REPORT INFORMATION
  Report Type: 
  Country: None (occurrence: None)
  Receive Date: 20040923
  Receipt Date: 20040701
  Transmission Date: 20050211
  Serious: No
  Sender: FDA-Public Use
  Company Number: USA040771677

PATIENT
  Age: 75 Year
  Sex: Female

DRUGS (6)
  1. FORTEO [Suspect]
     Indication: OSTEOPOROSIS
     Dosage: 20 UG DAY
     Dates: start: 20030601
  2. ELAVIL [Concomitant]
  3. LOPRESSOR [Concomitant]
  4. LEXAPRO [Concomitant]
  5. METOPROLOL [Concomitant]
  6. PREDNISONE [Concomitant]

REACTIONS (1)
  - VISUAL ACUITY REDUCED [None]
